FAERS Safety Report 17962831 (Version 3)
Quarter: 2020Q3

REPORT INFORMATION
  Report Type: Report from Study
  Country: None (occurrence: US)
  Receive Date: 20200630
  Receipt Date: 20200914
  Transmission Date: 20201103
  Serious: Yes (Other)
  Sender: FDA-Public Use
  Company Number: US-BIOVITRUM-2019US4598

PATIENT
  Age: 21 Year
  Sex: Male

DRUGS (7)
  1. PRILOSEC [Concomitant]
     Active Substance: OMEPRAZOLE MAGNESIUM
  2. BACTRIM [Concomitant]
     Active Substance: SULFAMETHOXAZOLE\TRIMETHOPRIM
  3. METHYLPREDNISOLONE. [Concomitant]
     Active Substance: METHYLPREDNISOLONE
  4. VITAMIN D WITH CALCIUM [Concomitant]
     Active Substance: CALCIUM\CHOLECALCIFEROL
  5. KINERET [Suspect]
     Active Substance: ANAKINRA
     Route: 058
  6. COLCRYS [Concomitant]
     Active Substance: COLCHICINE
  7. KINERET [Suspect]
     Active Substance: ANAKINRA
     Indication: PERICARDITIS
     Route: 058
     Dates: start: 20191127

REACTIONS (11)
  - Arthralgia [Unknown]
  - Injection site warmth [Unknown]
  - Swelling [Unknown]
  - Condition aggravated [Unknown]
  - Injection site irritation [Unknown]
  - Off label use [Not Recovered/Not Resolved]
  - Oedema peripheral [Unknown]
  - Pericarditis [Unknown]
  - Epistaxis [Unknown]
  - Injection site pain [Unknown]
  - Injection site rash [Unknown]

NARRATIVE: CASE EVENT DATE: 20191127
